FAERS Safety Report 4765972-4 (Version None)
Quarter: 2005Q3

REPORT INFORMATION
  Report Type: 
  Country: None (occurrence: None)
  Receive Date: 20050908
  Receipt Date: 20050829
  Transmission Date: 20060218
  Serious: Yes (Other)
  Sender: FDA-Public Use
  Company Number: 200513371BCC

PATIENT
  Age: 25 Year
  Sex: Female
  Weight: 68.0396 kg

DRUGS (4)
  1. MIDOL [Suspect]
     Indication: DYSMENORRHOEA
     Dosage: 220 MG, ONCE, ORAL
     Route: 048
     Dates: start: 20050819
  2. PAXIL [Concomitant]
  3. PROTONIX [Concomitant]
  4. ADVAIR DISKUS 100/50 [Concomitant]

REACTIONS (1)
  - DRUG HYPERSENSITIVITY [None]
